FAERS Safety Report 8019871-5 (Version None)
Quarter: 2011Q4

REPORT INFORMATION
  Report Type: 
  Country: None (occurrence: None)
  Receive Date: 20111227
  Receipt Date: 20111214
  Transmission Date: 20120403
  Serious: No
  Sender: FDA-Public Use
  Company Number: 216141

PATIENT

DRUGS (1)
  1. INNOHEP [Suspect]
     Indication: PRODUCT USED FOR UNKNOWN INDICATION

REACTIONS (3)
  - NO ADVERSE EVENT [None]
  - MEDICATION ERROR [None]
  - PRODUCT PACKAGING QUANTITY ISSUE [None]
